FAERS Safety Report 19793032 (Version 1)
Quarter: 2021Q3

REPORT INFORMATION
  Report Type: Report from Study
  Country: MX (occurrence: MX)
  Receive Date: 20210906
  Receipt Date: 20210906
  Transmission Date: 20211014
  Serious: Yes (Other)
  Sender: FDA-Public Use
  Company Number: NVSC2021MX152110

PATIENT
  Age: 72 Year
  Sex: Female
  Weight: 85 kg

DRUGS (8)
  1. ENTRESTO [Suspect]
     Active Substance: SACUBITRIL\VALSARTAN
     Indication: CARDIOMEGALY
     Dosage: 0.5 DF, BID (1/2 IN THE MORNING AND HALF AT NIGHT)
     Route: 048
     Dates: start: 20201217
  2. METOPROLOL. [Suspect]
     Active Substance: METOPROLOL
     Indication: PRODUCT USED FOR UNKNOWN INDICATION
     Dosage: 0.5 DF, QD
     Route: 065
  3. NOVOTIRAL [Concomitant]
     Active Substance: LEVOTHYROXINE
     Indication: PRODUCT USED FOR UNKNOWN INDICATION
     Dosage: 0.5 DF, FROM MONDAY TO SATURDAY
     Route: 065
  4. ISORBID [Concomitant]
     Active Substance: ISOSORBIDE DINITRATE
     Indication: PRODUCT USED FOR UNKNOWN INDICATION
     Dosage: 1 DF, EVERY 8 HOURS
     Route: 065
     Dates: start: 202106
  5. XARELTO [Concomitant]
     Active Substance: RIVAROXABAN
     Indication: PRODUCT USED FOR UNKNOWN INDICATION
     Dosage: 1 DF, QD
     Route: 065
  6. ASPIRIN PROTEC [Concomitant]
     Active Substance: ASPIRIN
     Indication: PRODUCT USED FOR UNKNOWN INDICATION
     Dosage: 1 DF, QD (AT NIGHT)
     Route: 065
  7. ENTRESTO [Suspect]
     Active Substance: SACUBITRIL\VALSARTAN
     Indication: PULMONARY HYPERTENSION
     Dosage: 0.5 DF, BID
     Route: 048
     Dates: start: 201907
  8. LASILACTON [Concomitant]
     Active Substance: FUROSEMIDE\SPIRONOLACTONE
     Indication: PRODUCT USED FOR UNKNOWN INDICATION
     Dosage: 1 DF, QD
     Route: 065

REACTIONS (3)
  - Wrong technique in product usage process [Unknown]
  - Hypothyroidism [Unknown]
  - Product use in unapproved indication [Unknown]

NARRATIVE: CASE EVENT DATE: 201907
